FAERS Safety Report 8601410-9 (Version None)
Quarter: 2012Q3

REPORT INFORMATION
  Report Type: 
  Country: None (occurrence: None)
  Receive Date: 20120817
  Receipt Date: 20120810
  Transmission Date: 20120928
  Serious: Yes (Hospitalization, Other)
  Sender: FDA-Public Use
  Company Number: PHEH2012US015956

PATIENT
  Sex: Male

DRUGS (1)
  1. MYFORTIC [Suspect]
     Indication: HEART TRANSPLANT
     Dosage: 360 MG, 2 Q 12 HOURS
     Route: 048

REACTIONS (5)
  - CIRCULATORY COLLAPSE [None]
  - DYSARTHRIA [None]
  - PSYCHOMOTOR SKILLS IMPAIRED [None]
  - ASTHENIA [None]
  - CEREBROVASCULAR ACCIDENT [None]
